FAERS Safety Report 6939554-X (Version None)
Quarter: 2010Q3

REPORT INFORMATION
  Report Type: 
  Country: None (occurrence: None)
  Receive Date: 20100819
  Receipt Date: 20100816
  Transmission Date: 20110219
  Serious: Yes (Other)
  Sender: FDA-Public Use
  Company Number: 2010SP024382

PATIENT
  Age: 19 Year
  Sex: Female
  Weight: 61.6 kg

DRUGS (2)
  1. IMPLANON [Suspect]
     Indication: CONTRACEPTION
     Dosage: SBDE
     Route: 059
     Dates: start: 20100311, end: 20100416
  2. IMPLANON [Suspect]

REACTIONS (2)
  - RASH PRURITIC [None]
  - URTICARIA [None]
